FAERS Safety Report 16592992 (Version 1)
Quarter: 2019Q3

REPORT INFORMATION
  Report Type: Spontaneous
  Country: IT (occurrence: IT)
  Receive Date: 20190718
  Receipt Date: 20190718
  Transmission Date: 20191004
  Serious: Yes (Other)
  Sender: FDA-Public Use
  Company Number: IT-AMGEN-ITASP2019112673

PATIENT

DRUGS (3)
  1. XGEVA [Suspect]
     Active Substance: DENOSUMAB
     Indication: BONE GIANT CELL TUMOUR
     Dosage: 120 MILLIGRAM, Q4WK
     Route: 058
  2. VITAMINE D [Concomitant]
     Active Substance: CHOLECALCIFEROL
     Dosage: UNK (400-800 INTERNATIONAL UNIT)
  3. CALCIUM [Concomitant]
     Active Substance: CALCIUM
     Dosage: UNK (500-1000 MILLIGRAM)

REACTIONS (1)
  - Stress fracture [Unknown]
